FAERS Safety Report 5664635-0 (Version None)
Quarter: 2008Q1

REPORT INFORMATION
  Report Type: 
  Country: None (occurrence: None)
  Receive Date: 20080314
  Receipt Date: 20080305
  Transmission Date: 20080703
  Serious: Yes (Hospitalization, Disabling, Other)
  Sender: FDA-Public Use
  Company Number: US-MERCK-0708USA00138

PATIENT
  Age: 67 Year
  Sex: Female

DRUGS (4)
  1. FOSAMAX [Suspect]
     Indication: PROPHYLAXIS
     Route: 048
     Dates: start: 20020528, end: 20051126
  2. ZOCOR [Concomitant]
     Indication: BLOOD CHOLESTEROL INCREASED
     Route: 048
     Dates: start: 20011017
  3. ACTONEL [Concomitant]
     Indication: COMPRESSION FRACTURE
     Route: 065
     Dates: start: 20020410, end: 20020528
  4. ACTONEL [Concomitant]
     Indication: INTERVERTEBRAL DISC DEGENERATION
     Route: 065
     Dates: start: 20020410, end: 20020528

REACTIONS (16)
  - ANXIETY [None]
  - AORTIC ANEURYSM [None]
  - BACK PAIN [None]
  - CARDIAC DISORDER [None]
  - CHRONIC OBSTRUCTIVE PULMONARY DISEASE [None]
  - DEPRESSION [None]
  - DYSPHONIA [None]
  - EAR DISORDER [None]
  - INCISIONAL HERNIA [None]
  - OSTEOMYELITIS [None]
  - OSTEONECROSIS [None]
  - OSTEOPOROSIS [None]
  - PAIN IN EXTREMITY [None]
  - PERIPHERAL VASCULAR DISORDER [None]
  - SUBCLAVIAN STEAL SYNDROME [None]
  - VERTEBROPLASTY [None]
